FAERS Safety Report 4507811-2 (Version None)
Quarter: 2004Q4

REPORT INFORMATION
  Report Type: 
  Country: None (occurrence: None)
  Receive Date: 20041123
  Receipt Date: 20040707
  Transmission Date: 20050328
  Serious: Yes (Death, Hospitalization)
  Sender: FDA-Public Use
  Company Number: US-AMGEN-US082697

PATIENT
  Sex: Female
  Weight: 66.3 kg

DRUGS (5)
  1. PROCRIT [Suspect]
     Indication: ANAEMIA OF MALIGNANT DISEASE
     Route: 058
     Dates: start: 20040526, end: 20040616
  2. COUMADIN [Concomitant]
  3. HEPARIN [Concomitant]
  4. LOVENOX [Concomitant]
     Route: 058
     Dates: start: 20040101
  5. IRON [Concomitant]

REACTIONS (8)
  - APHASIA [None]
  - CEREBROVASCULAR ACCIDENT [None]
  - COMA [None]
  - CONVULSION [None]
  - GRAND MAL CONVULSION [None]
  - LEUKOCYTOSIS [None]
  - PLATELET COUNT INCREASED [None]
  - PROTHROMBIN TIME PROLONGED [None]
